FAERS Safety Report 15464348 (Version 1)
Quarter: 2018Q4

REPORT INFORMATION
  Report Type: Spontaneous
  Country: US (occurrence: US)
  Receive Date: 20181004
  Receipt Date: 20181004
  Transmission Date: 20190204
  Serious: No
  Sender: FDA-Public Use
  Company Number: US-AMGEN-USASP2018133646

PATIENT

DRUGS (5)
  1. XELJANZ XR [Concomitant]
     Active Substance: TOFACITINIB CITRATE
     Dosage: 11 MG, QD
     Route: 048
  2. ENBREL [Suspect]
     Active Substance: ETANERCEPT
     Indication: FELTY^S SYNDROME
     Dosage: UNK
     Route: 065
  3. METHOTREXATE. [Suspect]
     Active Substance: METHOTREXATE
     Indication: FELTY^S SYNDROME
     Dosage: UNK
     Route: 048
  4. ARAVA [Suspect]
     Active Substance: LEFLUNOMIDE
     Indication: FELTY^S SYNDROME
     Dosage: UNK
     Route: 065
  5. SULFAZINE [Suspect]
     Active Substance: SULFASALAZINE
     Indication: FELTY^S SYNDROME
     Dosage: UNK
     Route: 065

REACTIONS (4)
  - Hypersensitivity [Unknown]
  - Off label use [Unknown]
  - Upper respiratory tract infection [Unknown]
  - Hepatic enzyme abnormal [Unknown]
